FAERS Safety Report 4330995-6 (Version None)
Quarter: 2004Q1

REPORT INFORMATION
  Report Type: 
  Country: None (occurrence: None)
  Receive Date: 20040331
  Receipt Date: 20040317
  Transmission Date: 20041129
  Serious: Yes (Hospitalization)
  Sender: FDA-Public Use
  Company Number: USA040362320

PATIENT
  Age: 52 Year
  Sex: Female

DRUGS (1)
  1. GEMZAR [Suspect]
     Indication: PANCREATIC CARCINOMA METASTATIC
     Dosage: 3000 MG/1 WEEK
     Dates: start: 20040303

REACTIONS (3)
  - CHILLS [None]
  - INTESTINAL OBSTRUCTION [None]
  - PYREXIA [None]
